FAERS Safety Report 10687318 (Version 1)
Quarter: 2014Q4

REPORT INFORMATION
  Report Type: Spontaneous
  Country: US (occurrence: None)
  Receive Date: 20141230
  Receipt Date: 20141230
  Transmission Date: 20150529
  Serious: Yes (Hospitalization, Other)
  Sender: FDA-Public Use
  Company Number: LH201400527

PATIENT
  Age: 26 Year
  Sex: Female

DRUGS (2)
  1. MAKENA [Suspect]
     Active Substance: HYDROXYPROGESTERONE CAPROATE
     Indication: PREMATURE DELIVERY
     Route: 030
     Dates: start: 20140911, end: 201412
  2. ASPIRIN (ACETYLSALICYLIC ACID) [Concomitant]
     Active Substance: ASPIRIN

REACTIONS (5)
  - Caesarean section [None]
  - Headache [None]
  - Malaise [None]
  - Maternal exposure timing unspecified [None]
  - Pre-eclampsia [None]

NARRATIVE: CASE EVENT DATE: 20141206
